FAERS Safety Report 6738747-4 (Version None)
Quarter: 2010Q2

REPORT INFORMATION
  Report Type: 
  Country: None (occurrence: None)
  Receive Date: 20100524
  Receipt Date: 20100511
  Transmission Date: 20101027
  Serious: Yes (Other)
  Sender: FDA-Public Use
  Company Number: US-ELI_LILLY_AND_COMPANY-US201005003070

PATIENT
  Sex: Male

DRUGS (2)
  1. PROZAC [Suspect]
     Indication: OBSESSIVE-COMPULSIVE DISORDER
     Dosage: 30 MG, UNK
  2. STRATTERA [Suspect]
     Indication: ATTENTION DEFICIT/HYPERACTIVITY DISORDER
     Dosage: 25 MG, UNK

REACTIONS (3)
  - EJACULATION DISORDER [None]
  - HOMICIDAL IDEATION [None]
  - SUICIDAL IDEATION [None]
